FAERS Safety Report 4539436-7 (Version None)
Quarter: 2004Q4

REPORT INFORMATION
  Report Type: 
  Country: None (occurrence: None)
  Receive Date: 20041222
  Receipt Date: 20041214
  Transmission Date: 20050328
  Serious: No
  Sender: FDA-Public Use
  Company Number: 2004AP06123

PATIENT
  Age: 79 Year
  Sex: Female

DRUGS (3)
  1. OMEPRAL [Suspect]
     Indication: GASTROOESOPHAGEAL REFLUX DISEASE
     Dosage: 20 MG DAILY PO
     Route: 048
     Dates: start: 20030122, end: 20041130
  2. GASMOTIN [Concomitant]
  3. ADALAT [Concomitant]

REACTIONS (2)
  - BLOOD GASTRIN INCREASED [None]
  - GASTRITIS [None]
